FAERS Safety Report 18853428 (Version 1)
Quarter: 2021Q1

REPORT INFORMATION
  Report Type: Spontaneous
  Country: US (occurrence: US)
  Receive Date: 20210205
  Receipt Date: 20210205
  Transmission Date: 20210420
  Serious: No
  Sender: FDA-Public Use
  Company Number: US-AMGEN-USASP2021015392

PATIENT
  Sex: Female

DRUGS (2)
  1. PROLIA [Suspect]
     Active Substance: DENOSUMAB
     Indication: UNDERWEIGHT
     Dosage: 60 MILLIGRAM, Q6MO
     Route: 065
     Dates: start: 201811
  2. PROLIA [Suspect]
     Active Substance: DENOSUMAB
     Indication: BONE DENSITY DECREASED
     Dosage: 60 MILLIGRAM, Q6MO
     Route: 065
     Dates: end: 2017

REACTIONS (4)
  - Body height decreased [Unknown]
  - Ankle fracture [Unknown]
  - Mobility decreased [Unknown]
  - Intervertebral disc compression [Unknown]

NARRATIVE: CASE EVENT DATE: 201710
